FAERS Safety Report 4802538-1 (Version None)
Quarter: 2005Q4

REPORT INFORMATION
  Report Type: 
  Country: None (occurrence: None)
  Receive Date: 20051014
  Receipt Date: 20050105
  Transmission Date: 20060501
  Serious: Yes (Other)
  Sender: FDA-Public Use
  Company Number: 2005006095

PATIENT
  Age: 7 Year
  Sex: Male
  Weight: 24.9478 kg

DRUGS (5)
  1. NEURONTIN [Suspect]
     Indication: ANXIETY
     Dosage: 200 MG (100 MG, 2 IN 1 D), ORAL
     Route: 048
     Dates: start: 20041230, end: 20041231
  2. NEURONTIN [Suspect]
     Indication: ATTENTION DEFICIT/HYPERACTIVITY DISORDER
     Dosage: 200 MG (100 MG, 2 IN 1 D), ORAL
     Route: 048
     Dates: start: 20041230, end: 20041231
  3. NEURONTIN [Suspect]
     Indication: BIPOLAR DISORDER
     Dosage: 200 MG (100 MG, 2 IN 1 D), ORAL
     Route: 048
     Dates: start: 20041230, end: 20041231
  4. NEURONTIN [Suspect]
     Indication: METAL POISONING
     Dosage: 200 MG (100 MG, 2 IN 1 D), ORAL
     Route: 048
     Dates: start: 20041230, end: 20041231
  5. NEURONTIN [Suspect]
     Indication: SOCIAL PHOBIA
     Dosage: 200 MG (100 MG, 2 IN 1 D), ORAL
     Route: 048
     Dates: start: 20041230, end: 20041231

REACTIONS (3)
  - AGGRESSION [None]
  - DRUG INEFFECTIVE [None]
  - MALAISE [None]
